FAERS Safety Report 6306284-7 (Version None)
Quarter: 2009Q3

REPORT INFORMATION
  Report Type: 
  Country: None (occurrence: None)
  Receive Date: 20090812
  Receipt Date: 20090804
  Transmission Date: 20100115
  Serious: Yes (Disabling)
  Sender: FDA-Public Use
  Company Number: PHHY2009IT32914

PATIENT
  Sex: Male

DRUGS (11)
  1. ZOMETA [Suspect]
     Indication: NEUROECTODERMAL NEOPLASM
     Dosage: UNK
     Dates: start: 20040626, end: 20050201
  2. ZOMETA [Suspect]
     Dosage: UNK
     Dates: start: 20080101, end: 20080201
  3. FLUOROURACIL [Concomitant]
  4. FOLINIC ACID [Concomitant]
  5. CISPLATIN [Concomitant]
  6. VINORELBINE [Concomitant]
  7. IFOSFAMIDE [Concomitant]
  8. VP-16 [Concomitant]
  9. MESNA [Concomitant]
  10. ADRIAMYCIN RDF [Concomitant]
  11. VINCRISTINE [Concomitant]

REACTIONS (2)
  - BONE DISORDER [None]
  - OSTEONECROSIS [None]
